FAERS Safety Report 4890654-8 (Version None)
Quarter: 2006Q1

REPORT INFORMATION
  Report Type: 
  Country: None (occurrence: None)
  Receive Date: 20060125
  Receipt Date: 20051109
  Transmission Date: 20060701
  Serious: No
  Sender: FDA-Public Use
  Company Number: US-BRISTOL-MYERS SQUIBB COMPANY-13176698

PATIENT
  Age: 74 Year
  Sex: Female

DRUGS (2)
  1. CARDIOLITE [Suspect]
     Indication: CARDIAC PHARMACOLOGIC STRESS TEST
     Dates: start: 20051102, end: 20051102
  2. CARDIOLITE [Suspect]
     Dates: start: 20051102, end: 20051102

REACTIONS (1)
  - INJECTION SITE ULCER [None]
